FAERS Safety Report 9126678 (Version 2)
Quarter: 2013Q1

REPORT INFORMATION
  Report Type: Spontaneous
  Country: BR (occurrence: BR)
  Receive Date: 20130228
  Receipt Date: 20130311
  Transmission Date: 20140127
  Serious: Yes (Other)
  Sender: FDA-Public Use
  Company Number: BR-JNJFOC-20130214652

PATIENT
  Age: 43 Year
  Sex: Female
  Weight: 51 kg

DRUGS (4)
  1. EVRA [Suspect]
     Indication: ENDOMETRIOSIS
     Route: 062
     Dates: start: 201011, end: 201208
  2. EVRA [Suspect]
     Indication: ENDOMETRIOSIS
     Route: 062
     Dates: start: 201208
  3. EVRA [Suspect]
     Indication: CONTRACEPTION
     Route: 062
     Dates: start: 201011, end: 201208
  4. EVRA [Suspect]
     Indication: CONTRACEPTION
     Route: 062
     Dates: start: 201208

REACTIONS (7)
  - Dyspnoea [Not Recovered/Not Resolved]
  - Off label use [Not Recovered/Not Resolved]
  - Inappropriate schedule of drug administration [Not Recovered/Not Resolved]
  - Angiopathy [Not Recovered/Not Resolved]
  - Blood triglycerides increased [Not Recovered/Not Resolved]
  - Vaginal haemorrhage [Not Recovered/Not Resolved]
  - Wrong technique in drug usage process [Not Recovered/Not Resolved]
